FAERS Safety Report 11814379 (Version 1)
Quarter: 2015Q4

REPORT INFORMATION
  Report Type: Spontaneous
  Country: TR (occurrence: TR)
  Receive Date: 20151209
  Receipt Date: 20151209
  Transmission Date: 20160305
  Serious: Yes (Other)
  Sender: FDA-Public Use
  Company Number: TR-JNJFOC-20151205554

PATIENT
  Sex: Male

DRUGS (1)
  1. REMICADE [Suspect]
     Active Substance: INFLIXIMAB
     Indication: PULMONARY ARTERY ANEURYSM
     Route: 042

REACTIONS (4)
  - Surgery [Recovered/Resolved]
  - Off label use [Unknown]
  - Product use issue [Unknown]
  - Pulmonary cavitation [Recovered/Resolved]
